FAERS Safety Report 6394214-1 (Version None)
Quarter: 2009Q4

REPORT INFORMATION
  Report Type: 
  Country: None (occurrence: None)
  Receive Date: 20091008
  Receipt Date: 20091006
  Transmission Date: 20100525
  Serious: Yes (Hospitalization)
  Sender: FDA-Public Use
  Company Number: ES-MERCK-0910ESP00005

PATIENT
  Age: 75 Year
  Sex: Female

DRUGS (2)
  1. INVANZ [Suspect]
     Indication: DIVERTICULITIS
     Route: 042
  2. INVANZ [Suspect]
     Indication: PERITONITIS
     Route: 042

REACTIONS (2)
  - COMA [None]
  - STATUS EPILEPTICUS [None]
